APPROVED DRUG PRODUCT: DEXTROSE 10% IN PLASTIC CONTAINER
Active Ingredient: DEXTROSE
Strength: 10GM/100ML
Dosage Form/Route: INJECTABLE;INJECTION
Application: A209448 | Product #001 | TE Code: AP
Applicant: FRESENIUS KABI USA LLC
Approved: Jul 16, 2018 | RLD: No | RS: No | Type: RX